FAERS Safety Report 9068715 (Version 2)
Quarter: 2014Q2

REPORT INFORMATION
  Report Type: Spontaneous
  Country: US (occurrence: US)
  Receive Date: 20130215
  Receipt Date: 20140505
  Transmission Date: 20141212
  Serious: Yes (Other)
  Sender: FDA-Public Use
  Company Number: US-AMGEN-USASP2013008673

PATIENT
  Age: 61 Year
  Sex: Female
  Weight: 72.56 kg

DRUGS (4)
  1. ENBREL [Suspect]
     Indication: ANKYLOSING SPONDYLITIS
     Dosage: 50 MG, QWK
     Route: 065
     Dates: end: 2013
  2. HUMIRA [Suspect]
     Indication: ANKYLOSING SPONDYLITIS
     Dosage: 40 MG, Q2WK
     Route: 058
     Dates: start: 20131119
  3. PYCNOGENOL [Concomitant]
     Dosage: UNK
  4. ARMOUR THYROID [Concomitant]
     Indication: THYROID DISORDER
     Dosage: 60 MG, QD

REACTIONS (8)
  - Iritis [Unknown]
  - Condition aggravated [Unknown]
  - Arthralgia [Unknown]
  - Sinus disorder [Unknown]
  - Cough [Recovered/Resolved]
  - Rhinorrhoea [Unknown]
  - Upper respiratory tract infection [Recovered/Resolved]
  - Injection site pain [Unknown]
